FAERS Safety Report 5460598-1 (Version None)
Quarter: 2007Q3

REPORT INFORMATION
  Report Type: 
  Country: None (occurrence: None)
  Receive Date: 20070919
  Receipt Date: 20070907
  Transmission Date: 20080115
  Serious: Yes (Other)
  Sender: FDA-Public Use
  Company Number: CN-PFIZER INC-2007074521

PATIENT
  Age: 5 Year
  Sex: Female
  Weight: 19 kg

DRUGS (1)
  1. ZITHROMAX [Suspect]
     Indication: URTICARIA
     Dosage: DAILY DOSE:200MG
     Route: 048
     Dates: start: 20070906, end: 20070906

REACTIONS (6)
  - ABDOMINAL DISCOMFORT [None]
  - GASTROINTESTINAL HAEMORRHAGE [None]
  - HAEMATEMESIS [None]
  - PLATELET COUNT DECREASED [None]
  - VOMITING [None]
  - WHITE BLOOD CELLS URINE POSITIVE [None]
